FAERS Safety Report 25227755 (Version 2)
Quarter: 2025Q2

REPORT INFORMATION
  Report Type: Spontaneous
  Country: US (occurrence: US)
  Receive Date: 20250423
  Receipt Date: 20250502
  Transmission Date: 20250717
  Serious: Yes (Death, Hospitalization)
  Sender: TEVA
  Company Number: US-TEVA-VS-3324200

PATIENT
  Age: 61 Year
  Sex: Male

DRUGS (2)
  1. LEVOFLOXACIN [Suspect]
     Active Substance: LEVOFLOXACIN
     Indication: Pulmonary tuberculosis
     Route: 065
  2. ETHAMBUTOL\ISONIAZID\PYRAZINAMIDE\RIFAMPIN [Suspect]
     Active Substance: ETHAMBUTOL\ETHAMBUTOL DIHYDROCHLORIDE, DL-\ISONIAZID\PYRAZINAMIDE\RIFAMPIN\RIFAMPIN SODIUM
     Indication: Pulmonary tuberculosis
     Route: 065

REACTIONS (1)
  - Drug ineffective [Fatal]
